FAERS Safety Report 19178864 (Version 1)
Quarter: 2021Q2

REPORT INFORMATION
  Report Type: Spontaneous
  Country: FR (occurrence: FR)
  Receive Date: 20210426
  Receipt Date: 20210426
  Transmission Date: 20210717
  Serious: Yes (Other)
  Sender: FDA-Public Use
  Company Number: FR-AUROBINDO-AUR-APL-2021-017018

PATIENT
  Age: 46 Year
  Sex: Male

DRUGS (1)
  1. TRAMADOL PROLONGED RELEASE TABLET [Suspect]
     Active Substance: TRAMADOL
     Indication: PAIN
     Dosage: 800 MILLIGRAM, ONCE A DAY
     Route: 048
     Dates: start: 2002

REACTIONS (2)
  - Drug withdrawal syndrome [Recovering/Resolving]
  - Drug dependence [Recovering/Resolving]

NARRATIVE: CASE EVENT DATE: 2002
